FAERS Safety Report 6177971-9 (Version None)
Quarter: 2009Q2

REPORT INFORMATION
  Report Type: 
  Country: None (occurrence: None)
  Receive Date: 20090504
  Receipt Date: 20070614
  Transmission Date: 20091009
  Serious: No
  Sender: FDA-Public Use
  Company Number: US-B.I. PHARMACEUTICALS,INC./RIDGEFIELD-2007-BP-06730BP

PATIENT
  Sex: Female

DRUGS (3)
  1. SPIRIVA [Suspect]
     Indication: CHRONIC OBSTRUCTIVE PULMONARY DISEASE
     Dosage: 18MCG
     Route: 055
     Dates: start: 20040101, end: 20070515
  2. SPIRIVA [Suspect]
     Indication: HYPERSENSITIVITY
  3. ADVAIR HFA [Concomitant]

REACTIONS (1)
  - LARYNGITIS [None]
